FAERS Safety Report 23502962 (Version 1)
Quarter: 2024Q1

REPORT INFORMATION
  Report Type: Spontaneous
  Country: US (occurrence: US)
  Receive Date: 20240208
  Receipt Date: 20240208
  Transmission Date: 20240409
  Serious: No
  Sender: FDA-Public Use
  Company Number: US-INTRA-CELLULAR THERAPIES, INC.-2023ICT01354

PATIENT
  Age: 6 Decade
  Sex: Female

DRUGS (1)
  1. CAPLYTA [Suspect]
     Active Substance: LUMATEPERONE
     Indication: Bipolar disorder
     Dosage: 42 MG, 1X/DAY
     Dates: start: 20230905, end: 20230925

REACTIONS (5)
  - Cough [Unknown]
  - Limb discomfort [Unknown]
  - Muscle twitching [Unknown]
  - Muscle spasms [Unknown]
  - Headache [Unknown]

NARRATIVE: CASE EVENT DATE: 20230901
